FAERS Safety Report 8220598-5 (Version None)
Quarter: 2012Q1

REPORT INFORMATION
  Report Type: 
  Country: None (occurrence: None)
  Receive Date: 20120320
  Receipt Date: 20120314
  Transmission Date: 20120608
  Serious: Yes (Other)
  Sender: FDA-Public Use
  Company Number: JP-TEVA-2011004053

PATIENT
  Sex: Male
  Weight: 77 kg

DRUGS (7)
  1. LAFUTIDINE [Concomitant]
  2. MAGNESIUM OXIDE [Concomitant]
     Indication: CONSTIPATION
  3. ALLOPURINOL [Concomitant]
  4. PREDNISOLONE [Concomitant]
     Indication: MANTLE CELL LYMPHOMA
     Dates: start: 20110326
  5. BACTRIM [Concomitant]
  6. DILTIAZEM HYDROCHLORIDE [Concomitant]
     Indication: HYPERTENSION
  7. TREANDA [Suspect]
     Indication: MANTLE CELL LYMPHOMA
     Route: 042
     Dates: start: 20110301

REACTIONS (9)
  - NEUTROPHIL COUNT DECREASED [None]
  - WHITE BLOOD CELL COUNT DECREASED [None]
  - NAUSEA [None]
  - PYREXIA [None]
  - LYMPHOCYTE COUNT DECREASED [None]
  - BLOOD UREA INCREASED [None]
  - PLATELET COUNT DECREASED [None]
  - RENAL IMPAIRMENT [None]
  - C-REACTIVE PROTEIN INCREASED [None]
